FAERS Safety Report 5269659-3 (Version None)
Quarter: 2007Q1

REPORT INFORMATION
  Report Type: 
  Country: None (occurrence: None)
  Receive Date: 20070314
  Receipt Date: 20070302
  Transmission Date: 20070707
  Serious: Yes (Life-Threatening)
  Sender: FDA-Public Use
  Company Number: 235229

PATIENT
  Age: 59 Year
  Sex: Male

DRUGS (24)
  1. MABTHERA (RITUXIMAB) CON FOR SOLUTION FOR INFUSION [Suspect]
     Indication: DIFFUSE LARGE B-CELL LYMPHOMA
     Dates: start: 20060925
  2. CYTARABINE [Suspect]
     Indication: DIFFUSE LARGE B-CELL LYMPHOMA
     Dosage: 430 MG, INTRAVENOUS
     Route: 042
     Dates: start: 20060925
  3. CARMUSTINE [Concomitant]
  4. ETOPOSIDE [Concomitant]
  5. MELPHALAN (MELPHALAN) [Concomitant]
  6. G-CSF (FILGRASTIM) [Concomitant]
  7. ZOFRAN [Concomitant]
  8. ALLOPURINOL [Concomitant]
  9. SEPTRA [Concomitant]
  10. VALTREX [Concomitant]
  11. LANSOPRAZOLE [Concomitant]
  12. DIFLUCAN [Concomitant]
  13. PERINDOPRIL ERBUMINE [Concomitant]
  14. ISTIN (AMLODIPINE BESYLATE) [Concomitant]
  15. ACETAMINOPHEN [Concomitant]
  16. PIPERACILLIN SODIUM AND TAZOBACTAM SODIUM [Concomitant]
  17. FUROSEMIDE [Concomitant]
  18. CYCLIZINE (CYCLIZINE) [Concomitant]
  19. GENTAMICIN [Concomitant]
  20. MEROPENEM (MEROPENEM) [Concomitant]
  21. AMBISOME [Concomitant]
  22. AMIKACIN [Concomitant]
  23. DEXAMETHASONE TAB [Suspect]
     Indication: DIFFUSE LARGE B-CELL LYMPHOMA
     Dosage: Q3W
     Dates: start: 20060925
  24. CISPLATIN [Suspect]
     Indication: DIFFUSE LARGE B-CELL LYMPHOMA
     Dosage: Q3W

REACTIONS (6)
  - BLOOD SODIUM DECREASED [None]
  - GASTROINTESTINAL TOXICITY [None]
  - HAEMOGLOBIN DECREASED [None]
  - HYPERKALAEMIA [None]
  - PCO2 DECREASED [None]
  - RENAL TUBULAR ACIDOSIS [None]
